FAERS Safety Report 9819622 (Version 1)
Quarter: 2014Q1

REPORT INFORMATION
  Report Type: Spontaneous
  Country: US (occurrence: PL)
  Receive Date: 20140115
  Receipt Date: 20140115
  Transmission Date: 20141002
  Serious: Yes (Other)
  Sender: FDA-Public Use
  Company Number: PL-FRI-1000052789

PATIENT
  Age: 52 Year
  Sex: Male
  Weight: 65 kg

DRUGS (2)
  1. ROFLUMILAST [Suspect]
     Dosage: 500 MCG
     Route: 048
     Dates: start: 20130914
  2. ROFLUMILAST [Suspect]
     Dosage: 250 MCG
     Route: 048
     Dates: start: 20131012, end: 20131123

REACTIONS (4)
  - Diarrhoea [Recovered/Resolved]
  - Malaise [Recovered/Resolved]
  - Anxiety [Recovered/Resolved]
  - Insomnia [Recovered/Resolved]
